FAERS Safety Report 6072389-1 (Version None)
Quarter: 2009Q1

REPORT INFORMATION
  Report Type: 
  Country: None (occurrence: None)
  Receive Date: 20090209
  Receipt Date: 20090209
  Transmission Date: 20090719
  Serious: No
  Sender: FDA-Public Use
  Company Number: None

PATIENT
  Age: 43 Year
  Sex: Female
  Weight: 72.1219 kg

DRUGS (1)
  1. METOPROLOL SUCCINATE [Suspect]
     Indication: PALPITATIONS
     Dosage: 1/2 TABLET DAILY PO
     Route: 048
     Dates: start: 20090107, end: 20090205

REACTIONS (9)
  - BLOOD PRESSURE INCREASED [None]
  - CONDITION AGGRAVATED [None]
  - DIZZINESS [None]
  - FATIGUE [None]
  - HEADACHE [None]
  - MYOCARDIAL INFARCTION [None]
  - PALPITATIONS [None]
  - PRODUCT QUALITY ISSUE [None]
  - THERAPEUTIC RESPONSE UNEXPECTED WITH DRUG SUBSTITUTION [None]
